FAERS Safety Report 9326760 (Version 1)
Quarter: 2013Q2

REPORT INFORMATION
  Report Type: Spontaneous
  Country: DE (occurrence: None)
  Receive Date: 20130522
  Receipt Date: 20130522
  Transmission Date: 20140414
  Serious: Yes (Disabling)
  Sender: FDA-Public Use
  Company Number: 2013MZ000086

PATIENT
  Age: 45 Year
  Sex: Female

DRUGS (3)
  1. XEOMIN [Suspect]
     Indication: SKIN COSMETIC PROCEDURE
     Dates: start: 20130405, end: 20130405
  2. CODEINE (CODEINE) [Suspect]
     Indication: ENDOMETRIOSIS
     Dates: start: 201303, end: 201303
  3. CODEINE (CODEINE) [Suspect]
     Indication: DYSMENORRHOEA
     Dates: start: 201303, end: 201303

REACTIONS (7)
  - Muscular weakness [None]
  - Fatigue [None]
  - Dizziness [None]
  - Decreased appetite [None]
  - Weight decreased [None]
  - Fatigue [None]
  - Malaise [None]
